FAERS Safety Report 12640944 (Version 4)
Quarter: 2016Q4

REPORT INFORMATION
  Report Type: Spontaneous
  Country: JP (occurrence: JP)
  Receive Date: 20160810
  Receipt Date: 20161027
  Transmission Date: 20170207
  Serious: Yes (Hospitalization, Other)
  Sender: FDA-Public Use
  Company Number: JP-GLAXOSMITHKLINE-JP2016JPN113597

PATIENT
  Age: 59 Year
  Sex: Female

DRUGS (3)
  1. LOXONIN [Concomitant]
     Active Substance: LOXOPROFEN SODIUM
     Dosage: UNK
  2. SELBEX [Concomitant]
     Active Substance: TEPRENONE
     Dosage: UNK
  3. VALTREX [Suspect]
     Active Substance: VALACYCLOVIR HYDROCHLORIDE
     Dosage: 1000 MG, TID
     Route: 048
     Dates: start: 20160801, end: 20160804

REACTIONS (6)
  - Psychiatric symptom [Recovered/Resolved]
  - Altered state of consciousness [Recovered/Resolved]
  - Colour blindness acquired [Recovered/Resolved]
  - Renal impairment [Recovered/Resolved]
  - Disorientation [Recovered/Resolved]
  - Toxic encephalopathy [Recovered/Resolved]

NARRATIVE: CASE EVENT DATE: 20160804
